FAERS Safety Report 12014838 (Version 1)
Quarter: 2016Q1

REPORT INFORMATION
  Report Type: Report from Study
  Country: US (occurrence: US)
  Receive Date: 20160205
  Receipt Date: 20160205
  Transmission Date: 20160526
  Serious: No
  Sender: FDA-Public Use
  Company Number: US-ABBVIE-15K-163-1449666-00

PATIENT
  Age: 54 Year
  Sex: Female

DRUGS (4)
  1. HUMIRA [Suspect]
     Active Substance: ADALIMUMAB
     Indication: PSORIASIS
     Route: 065
     Dates: start: 20150609
  2. PREDNISONE. [Suspect]
     Active Substance: PREDNISONE
     Indication: PRODUCT USED FOR UNKNOWN INDICATION
     Dosage: TWO PILLS FOR FOUR DAYS
     Route: 048
     Dates: start: 20150715, end: 20150718
  3. PREDNISONE. [Suspect]
     Active Substance: PREDNISONE
     Dosage: ONE PILL FOR FOUR DAYS
     Route: 048
     Dates: start: 20150719, end: 20150722
  4. PREDNISONE. [Suspect]
     Active Substance: PREDNISONE
     Dosage: HALF PILL FOR FOUR DAYS
     Route: 048
     Dates: start: 20150723, end: 20150726

REACTIONS (1)
  - Rash [Not Recovered/Not Resolved]

NARRATIVE: CASE EVENT DATE: 20150715
